FAERS Safety Report 7757934 (Version 3)
Quarter: 2013Q1

REPORT INFORMATION
  Report Type: Spontaneous
  Country: US (occurrence: US)
  Receive Date: 20110112
  Receipt Date: 20130109
  Transmission Date: 20140127
  Serious: Yes (Other)
  Sender: FDA-Public Use
  Company Number: US-AMGEN-USASP2011001471

PATIENT
  Age: 52 Year
  Sex: Female

DRUGS (12)
  1. ENBREL [Suspect]
     Indication: RHEUMATOID ARTHRITIS
     Dosage: 50 MG, QWK
     Dates: start: 20101109, end: 20101229
  2. FOLIC ACID [Concomitant]
     Dosage: 1 MG, UNK
  3. METHOTREXATE [Concomitant]
     Dosage: 2.5 MG, UNK
  4. LOVASTATIN [Concomitant]
     Dosage: 40 MG, UNK
  5. TRAMADOL /00599202/ [Concomitant]
     Dosage: 50 MG, UNK
  6. FISH OIL [Concomitant]
     Dosage: 1200 MG, UNK
  7. VITAMIN D /00107901/ [Concomitant]
     Dosage: 2000 UNIT, UNK
  8. VITAMIN C                          /00008001/ [Concomitant]
     Dosage: 500 MG, UNK
  9. CALCIUM +D                         /00944201/ [Concomitant]
     Dosage: 500 UNK, UNK
  10. TRAZODONE [Concomitant]
     Dosage: 50 MG, UNK
  11. VICODIN ES [Concomitant]
     Dosage: UNK
  12. AMLODIPINE [Concomitant]
     Dosage: 5 MG, UNK

REACTIONS (10)
  - Trigeminal neuralgia [Unknown]
  - Hypoaesthesia [Not Recovered/Not Resolved]
  - Paraesthesia [Recovered/Resolved]
  - Ulcer [Recovered/Resolved]
  - White blood cell count increased [Not Recovered/Not Resolved]
  - Cough [Not Recovered/Not Resolved]
  - Chills [Not Recovered/Not Resolved]
  - Malaise [Not Recovered/Not Resolved]
  - Sinus congestion [Not Recovered/Not Resolved]
  - Pyrexia [Not Recovered/Not Resolved]
